FAERS Safety Report 8585337-7 (Version None)
Quarter: 2012Q3

REPORT INFORMATION
  Report Type: 
  Country: None (occurrence: None)
  Receive Date: 20120810
  Receipt Date: 20120802
  Transmission Date: 20120928
  Serious: Yes (Other)
  Sender: FDA-Public Use
  Company Number: JP-ASTELLAS-2012US005724

PATIENT
  Sex: Male
  Weight: 61 kg

DRUGS (14)
  1. FAMOTIDINE [Concomitant]
     Indication: PRODUCT USED FOR UNKNOWN INDICATION
     Dosage: 20 MG, UID/QD
     Route: 048
  2. DEXAMETHASONE SODIUM PHOSPHATE [Concomitant]
     Dosage: 3.3 MG, UID/QD
     Route: 042
     Dates: start: 20120521, end: 20120521
  3. MAGLAX [Concomitant]
     Indication: PRODUCT USED FOR UNKNOWN INDICATION
     Dosage: 990 MG, UID/QD
     Route: 048
  4. DEXAMETHASONE SODIUM PHOSPHATE [Concomitant]
     Dosage: 3.3 MG, UID/QD
     Route: 042
     Dates: start: 20120514, end: 20120514
  5. DEXAMETHASONE SODIUM PHOSPHATE [Concomitant]
     Indication: PRODUCT USED FOR UNKNOWN INDICATION
     Dosage: 3.3 MG, UID/QD
     Route: 042
     Dates: start: 20120402, end: 20120402
  6. DEXAMETHASONE SODIUM PHOSPHATE [Concomitant]
     Dosage: 3.3 MG, UID/QD
     Route: 042
     Dates: start: 20120409, end: 20120409
  7. DEXAMETHASONE SODIUM PHOSPHATE [Concomitant]
     Dosage: 3.3 MG, UID/QD
     Route: 042
     Dates: start: 20120604, end: 20120604
  8. ERLOTINIB HYDROCHLORIDE [Suspect]
     Dosage: 50 MG, UID/QD
     Route: 048
     Dates: start: 20120424
  9. ZOPICLONE [Concomitant]
     Indication: PRODUCT USED FOR UNKNOWN INDICATION
     Dosage: 7.5 MG, TOTAL DOSE
     Route: 048
  10. DEXAMETHASONE SODIUM PHOSPHATE [Concomitant]
     Dosage: 3.3 MG, UID/QD
     Route: 042
     Dates: start: 20120507, end: 20120507
  11. ERLOTINIB HYDROCHLORIDE [Suspect]
     Indication: ADENOCARCINOMA PANCREAS
     Dosage: 100 MG, UID/QD
     Route: 048
     Dates: start: 20120403, end: 20120423
  12. GEMCITABINE HYDROCHLORIDE [Suspect]
     Indication: ADENOCARCINOMA PANCREAS
     Dosage: 1000 MG/M2, WEEKLY
     Route: 041
     Dates: start: 20120402
  13. BASEN [Concomitant]
     Indication: PRODUCT USED FOR UNKNOWN INDICATION
     Dosage: 0.9 MG, UID/QD
     Route: 048
  14. DEXAMETHASONE SODIUM PHOSPHATE [Concomitant]
     Dosage: 3.3 MG, UID/QD
     Route: 042
     Dates: start: 20120416, end: 20120416

REACTIONS (4)
  - WHITE BLOOD CELL COUNT DECREASED [None]
  - STOMATITIS [None]
  - DERMATITIS ACNEIFORM [None]
  - NAUSEA [None]
